FAERS Safety Report 6518035-1 (Version None)
Quarter: 2009Q4

REPORT INFORMATION
  Report Type: 
  Country: None (occurrence: None)
  Receive Date: 20091224
  Receipt Date: 20091211
  Transmission Date: 20100525
  Serious: Yes (Other)
  Sender: FDA-Public Use
  Company Number: FR-PFIZER INC-2009296562

PATIENT
  Sex: Male
  Weight: 51 kg

DRUGS (3)
  1. SALAZOPYRIN [Suspect]
     Indication: SPONDYLITIS
     Dosage: UNK
     Dates: start: 20090101, end: 20091105
  2. NAPROXEN [Concomitant]
     Indication: SPONDYLITIS
     Dosage: UNK
     Route: 048
     Dates: start: 20090601
  3. MOPRAL [Concomitant]
     Dosage: UNK
     Route: 048
     Dates: start: 20080101

REACTIONS (2)
  - ASPARTATE AMINOTRANSFERASE INCREASED [None]
  - BLOOD CREATINE PHOSPHOKINASE INCREASED [None]
